FAERS Safety Report 4901429-5 (Version None)
Quarter: 2006Q1

REPORT INFORMATION
  Report Type: 
  Country: None (occurrence: None)
  Receive Date: 20060201
  Receipt Date: 20060201
  Transmission Date: 20060701
  Serious: Yes (Hospitalization)
  Sender: FDA-Public Use
  Company Number: None

PATIENT
  Age: 71 Year
  Sex: Male
  Weight: 106.1417 kg

DRUGS (2)
  1. WARFARIN 5 MG [Suspect]
     Indication: ATRIAL FIBRILLATION
     Dosage: 5 MG DAILY PO
     Route: 048
     Dates: start: 20050303, end: 20060131
  2. MOXIFLOXACIN 400 MG [Suspect]
     Indication: CELLULITIS
     Dosage: 400 MG DAILY PO
     Route: 048
     Dates: start: 20051212, end: 20051224

REACTIONS (4)
  - COAGULOPATHY [None]
  - DRUG INTERACTION [None]
  - HAEMOPTYSIS [None]
  - INTERNATIONAL NORMALISED RATIO INCREASED [None]
